FAERS Safety Report 18771538 (Version 1)
Quarter: 2021Q1

REPORT INFORMATION
  Report Type: Spontaneous
  Country: US (occurrence: US)
  Receive Date: 20210121
  Receipt Date: 20210121
  Transmission Date: 20210419
  Serious: No
  Sender: FDA-Public Use
  Company Number: US-PERRIGO-20US014603

PATIENT
  Age: 26 Year
  Sex: Male
  Weight: 90.7 kg

DRUGS (4)
  1. NAPROXEN SODIUM. [Concomitant]
     Active Substance: NAPROXEN SODIUM
     Indication: BACK PAIN
     Dosage: UNKNOWN, UNKNOWN
     Route: 048
     Dates: start: 202003, end: 20201008
  2. ASPIRIN                            /00002701/ [Concomitant]
     Active Substance: ASPIRIN
     Indication: BACK PAIN
     Dosage: UNKNOWN, UNKNOWN
     Route: 048
     Dates: start: 202003, end: 20201008
  3. IBUPROFEN. [Suspect]
     Active Substance: IBUPROFEN
     Dosage: 1600 MG, EVERY 2 HOURS
     Route: 048
     Dates: start: 20201001, end: 20201008
  4. IBUPROFEN. [Suspect]
     Active Substance: IBUPROFEN
     Indication: BACK PAIN
     Dosage: 1600 MG, EVERY 2 HOURS, PRN
     Route: 048
     Dates: start: 202003, end: 20200930

REACTIONS (2)
  - Overdose [Recovered/Resolved]
  - Drug ineffective [Unknown]

NARRATIVE: CASE EVENT DATE: 202003
